FAERS Safety Report 8570894-7 (Version None)
Quarter: 2012Q3

REPORT INFORMATION
  Report Type: 
  Country: None (occurrence: None)
  Receive Date: 20120806
  Receipt Date: 20120725
  Transmission Date: 20120928
  Serious: Yes (Hospitalization)
  Sender: FDA-Public Use
  Company Number: US-BIOGENIDEC-2012BI028437

PATIENT
  Age: 71 Year
  Sex: Female

DRUGS (4)
  1. AVONEX [Suspect]
     Indication: MULTIPLE SCLEROSIS
     Route: 030
  2. AVONEX [Suspect]
     Route: 030
     Dates: start: 20040901
  3. ANESTHESIA [Concomitant]
  4. AVONEX [Suspect]
     Route: 030
     Dates: start: 20120501

REACTIONS (2)
  - SPINAL COLUMN STENOSIS [None]
  - ANAESTHETIC COMPLICATION [None]
